FAERS Safety Report 8707930 (Version 2)
Quarter: 2012Q4

REPORT INFORMATION
  Report Type: 
  Country: US (occurrence: US)
  Receive Date: 20120806
  Receipt Date: 20120911
  Transmission Date: 20130627
  Serious: No
  Sender: FDA-Public Use
  Company Number: US-PFIZER INC-2012188636

PATIENT
  Age: 32 Year
  Sex: Female
  Weight: 106 kg

DRUGS (5)
  1. CHANTIX [Suspect]
     Indication: SMOKING CESSATION THERAPY
     Dosage: 0.5 mg, 1x/day
     Route: 048
     Dates: start: 20120529
  2. CHANTIX [Suspect]
     Dosage: 1 mg, 2x/day
     Route: 048
  3. IBUPROFEN [Concomitant]
     Indication: BACK PAIN
     Dosage: 800 mg, 3x/day, as needed
     Dates: start: 20120509
  4. ROBAXIN [Concomitant]
     Indication: BACK PAIN
     Dosage: 500 mg, 4x/day, as needed
     Dates: start: 20120611
  5. ZOFRAN [Concomitant]
     Indication: NAUSEA
     Dosage: 4 mg, every 6th hour, as needed
     Dates: start: 20120509

REACTIONS (1)
  - Drug screen false positive [Unknown]
